FAERS Safety Report 6942249-X (Version None)
Quarter: 2010Q3

REPORT INFORMATION
  Report Type: 
  Country: None (occurrence: None)
  Receive Date: 20100820
  Receipt Date: 20100810
  Transmission Date: 20110219
  Serious: Yes (Hospitalization, Disabling)
  Sender: FDA-Public Use
  Company Number: 016946

PATIENT
  Age: 27 Year
  Sex: Male
  Weight: 98 kg

DRUGS (2)
  1. KEPPRA [Suspect]
     Indication: CONVULSION
     Dosage: 100 MG QOD, (300 MG QOD)
     Dates: start: 20051115, end: 20060301
  2. KEPPRA [Suspect]
     Indication: CONVULSION
     Dosage: 100 MG QOD, (300 MG QOD)
     Dates: start: 20060301, end: 20090601

REACTIONS (3)
  - FEMORAL NECK FRACTURE [None]
  - HIP FRACTURE [None]
  - HYPERLIPIDAEMIA [None]
